FAERS Safety Report 10700139 (Version 3)
Quarter: 2015Q3

REPORT INFORMATION
  Report Type: Spontaneous
  Country: US (occurrence: US)
  Receive Date: 20150109
  Receipt Date: 20150831
  Transmission Date: 20151125
  Serious: Yes (Hospitalization, Other)
  Sender: FDA-Public Use
  Company Number: US-BAYER-2015-002930

PATIENT
  Age: 45 Year
  Sex: Female
  Weight: 61.22 kg

DRUGS (8)
  1. WELLBUTRIN [Concomitant]
     Active Substance: BUPROPION HYDROCHLORIDE
  2. GIANVI [Suspect]
     Active Substance: DROSPIRENONE\ETHINYL ESTRADIOL
     Indication: ACNE
     Dosage: UNK
     Dates: start: 2006, end: 2013
  3. YAZ [Suspect]
     Active Substance: DROSPIRENONE\ETHINYL ESTRADIOL
     Indication: ACNE
     Dosage: UNK
     Dates: start: 2004, end: 2006
  4. BUPROPION. [Concomitant]
     Active Substance: BUPROPION
     Indication: ANXIETY
     Dosage: 150 MG, 1 DAY
  5. OMEGA 3 FISH OIL [Concomitant]
     Active Substance: FISH OIL\OMEGA-3 FATTY ACIDS
     Dosage: EVERYDAY
  6. ZITHROMAX [Concomitant]
     Active Substance: AZITHROMYCIN DIHYDRATE
  7. VALIUM [BENZOIC AC,BENZYL ALCOH,DIAZEPAM,ETHANOL,PROPYL GLYC,NA+ B [Concomitant]
  8. CELEBREX [Concomitant]
     Active Substance: CELECOXIB

REACTIONS (7)
  - Emotional distress [None]
  - Pneumonia [None]
  - Pulmonary infarction [None]
  - Deep vein thrombosis [None]
  - Anaemia [None]
  - Injury [None]
  - Pulmonary embolism [None]

NARRATIVE: CASE EVENT DATE: 20130128
